FAERS Safety Report 24164805 (Version 1)
Quarter: 2024Q3

REPORT INFORMATION
  Report Type: Spontaneous
  Country: US (occurrence: US)
  Receive Date: 20240801
  Receipt Date: 20240801
  Transmission Date: 20241017
  Serious: No
  Sender: MERCK
  Company Number: US-009507513-2407USA013369

PATIENT
  Age: 63 Year
  Sex: Female

DRUGS (12)
  1. MOLNUPIRAVIR [Suspect]
     Active Substance: MOLNUPIRAVIR
     Indication: COVID-19 treatment
     Dosage: 800 MG (200MG/4 CAPSULES), Q12H (EVERY 12 HOURS)
     Route: 048
     Dates: start: 20240722
  2. ADDERALL [Concomitant]
     Active Substance: AMPHETAMINE ASPARTATE\AMPHETAMINE SULFATE\DEXTROAMPHETAMINE SACCHARATE\DEXTROAMPHETAMINE SULFATE
     Dosage: 20 MG
  3. ANASTROZOLE [Concomitant]
     Active Substance: ANASTROZOLE
     Dosage: 1 MG
  4. ESCITALOPRAM [Concomitant]
     Active Substance: ESCITALOPRAM OXALATE
     Dosage: 75 MG
  5. RAMIPRIL [Concomitant]
     Active Substance: RAMIPRIL
     Dosage: 10 MG
  6. PREDNISONE [Concomitant]
     Active Substance: PREDNISONE
     Dosage: 50 MG
  7. AMLODIPINE [Concomitant]
     Active Substance: AMLODIPINE BESYLATE
     Dosage: UNK, PRN
  8. VITAMIN D NOS [Concomitant]
     Active Substance: CHOLECALCIFEROL\ERGOCALCIFEROL
  9. VITAMIN C [Concomitant]
     Active Substance: ASCORBIC ACID
  10. MOMETASONE FUROATE [Concomitant]
     Active Substance: MOMETASONE FUROATE
  11. LEVOCABASTINE HYDROCHLORIDE [Concomitant]
     Active Substance: LEVOCABASTINE HYDROCHLORIDE
  12. MUCINEX [Concomitant]
     Active Substance: GUAIFENESIN

REACTIONS (3)
  - Oropharyngeal pain [Unknown]
  - Cough [Unknown]
  - Drainage [Unknown]

NARRATIVE: CASE EVENT DATE: 20240723
